FAERS Safety Report 21801428 (Version 1)
Quarter: 2022Q4

REPORT INFORMATION
  Report Type: Spontaneous
  Country: US (occurrence: None)
  Receive Date: 20221230
  Receipt Date: 20221230
  Transmission Date: 20230113
  Serious: Yes (Other)
  Sender: FDA-Public Use
  Company Number: None

PATIENT
  Age: 64 Year
  Sex: Female
  Weight: 62.1 kg

DRUGS (2)
  1. URSODIOL [Suspect]
     Active Substance: URSODIOL
     Indication: Hepatic enzyme increased
     Dosage: OTHER QUANTITY : 4 TABLET(S);?FREQUENCY : DAILY;?
     Route: 048
  2. vitamins - fat soluble solgar [Concomitant]

REACTIONS (4)
  - Pain [None]
  - Double stranded DNA antibody positive [None]
  - Complement factor C4 increased [None]
  - Antinuclear antibody positive [None]

NARRATIVE: CASE EVENT DATE: 20221207
